FAERS Safety Report 8862813 (Version 2)
Quarter: 2013Q1

REPORT INFORMATION
  Report Type: Report from Study
  Country: US (occurrence: US)
  Receive Date: 20121026
  Receipt Date: 20130121
  Transmission Date: 20140127
  Serious: Yes (Hospitalization)
  Sender: FDA-Public Use
  Company Number: US-JNJFOC-20121011493

PATIENT
  Age: 25 Year
  Sex: Female
  Weight: 55.3 kg

DRUGS (4)
  1. TYLENOL 3 [Suspect]
     Indication: PRODUCT USED FOR UNKNOWN INDICATION
     Route: 048
     Dates: start: 20121015
  2. PERCOCET [Suspect]
     Indication: PRODUCT USED FOR UNKNOWN INDICATION
     Route: 048
     Dates: start: 20121015
  3. VICODIN [Suspect]
     Indication: PRODUCT USED FOR UNKNOWN INDICATION
     Route: 048
     Dates: start: 20121015
  4. ALCOHOL [Suspect]
     Indication: PRODUCT USED FOR UNKNOWN INDICATION
     Route: 048
     Dates: start: 20121015

REACTIONS (3)
  - Self injurious behaviour [Recovered/Resolved]
  - Overdose [Recovered/Resolved]
  - Abdominal pain [Recovered/Resolved]
